FAERS Safety Report 10664575 (Version 2)
Quarter: 2015Q1

REPORT INFORMATION
  Report Type: Spontaneous
  Country: SK (occurrence: SK)
  Receive Date: 20141219
  Receipt Date: 20150102
  Transmission Date: 20150720
  Serious: Yes (Hospitalization)
  Sender: FDA-Public Use
  Company Number: SK-EMD SERONO-8002047

PATIENT
  Age: 28 Year
  Sex: Female

DRUGS (3)
  1. REBIF [Suspect]
     Active Substance: INTERFERON BETA-1A
     Dates: start: 201409
  2. REBIF [Suspect]
     Active Substance: INTERFERON BETA-1A
     Indication: RELAPSING-REMITTING MULTIPLE SCLEROSIS
     Dosage: TITRATION DOSE
  3. REBIF [Suspect]
     Active Substance: INTERFERON BETA-1A
     Dosage: 44 (UNSPECIFIED UNIT)

REACTIONS (5)
  - Retinal vasculitis [Recovering/Resolving]
  - Multiple sclerosis relapse [Unknown]
  - Vision blurred [Not Recovered/Not Resolved]
  - Micturition urgency [Unknown]
  - Visual acuity reduced [Not Recovered/Not Resolved]

NARRATIVE: CASE EVENT DATE: 20141212
